FAERS Safety Report 20005175 (Version 1)
Quarter: 2021Q4

REPORT INFORMATION
  Report Type: Spontaneous
  Country: TR (occurrence: TR)
  Receive Date: 20211027
  Receipt Date: 20211027
  Transmission Date: 20220303
  Serious: Yes (Other)
  Sender: FDA-Public Use
  Company Number: TR-BIOMARINAP-TR-2021-139257

PATIENT
  Sex: Female

DRUGS (1)
  1. NAGLAZYME [Suspect]
     Active Substance: GALSULFASE
     Indication: Mucopolysaccharidosis VI
     Dosage: UNK
     Route: 065

REACTIONS (4)
  - Spinal disorder [Unknown]
  - Conductive deafness [Unknown]
  - Magnetic resonance imaging head abnormal [Unknown]
  - Corneal opacity [Unknown]
